FAERS Safety Report 6117345-X (Version None)
Quarter: 2009Q1

REPORT INFORMATION
  Report Type: 
  Country: None (occurrence: None)
  Receive Date: 20090314
  Receipt Date: 20090113
  Transmission Date: 20090719
  Serious: No
  Sender: FDA-Public Use
  Company Number: US-ABBOTT-09P-163-0497885-00

PATIENT
  Sex: Female
  Weight: 49.94 kg

DRUGS (1)
  1. HUMIRA [Suspect]
     Indication: PSORIATIC ARTHROPATHY
     Route: 058
     Dates: start: 20080201

REACTIONS (5)
  - BLEPHAROSPASM [None]
  - DIZZINESS [None]
  - EAR PAIN [None]
  - TYMPANIC MEMBRANE PERFORATION [None]
  - VISION BLURRED [None]
